FAERS Safety Report 10554576 (Version 2)
Quarter: 2014Q4

REPORT INFORMATION
  Report Type: Spontaneous
  Country: JP (occurrence: JP)
  Receive Date: 20141030
  Receipt Date: 20141030
  Transmission Date: 20150529
  Serious: Yes (Life-Threatening, Other)
  Sender: FDA-Public Use
  Company Number: JP-GLAXOSMITHKLINE-JP2014JPN012494

PATIENT
  Age: 74 Year
  Sex: Female

DRUGS (3)
  1. OXYCONTIN [Concomitant]
     Active Substance: OXYCODONE HYDROCHLORIDE
     Dosage: 60 MG, BID
     Dates: end: 20140912
  2. RINDERON V [Concomitant]
     Active Substance: BETAMETHASONE VALERATE
     Dosage: 2 MG, QD
     Dates: end: 20140912
  3. VOTRIENT [Suspect]
     Active Substance: PAZOPANIB HYDROCHLORIDE
     Indication: PERITONEAL SARCOMA
     Dosage: 800 MG, QD
     Route: 048
     Dates: start: 20140813, end: 20140922

REACTIONS (2)
  - Intestinal perforation [Not Recovered/Not Resolved]
  - Peritonitis [Not Recovered/Not Resolved]

NARRATIVE: CASE EVENT DATE: 20140922
